FAERS Safety Report 8251220-X (Version None)
Quarter: 2012Q2

REPORT INFORMATION
  Report Type: 
  Country: None (occurrence: None)
  Receive Date: 20120402
  Receipt Date: 20120322
  Transmission Date: 20120825
  Serious: Yes (Other)
  Sender: FDA-Public Use
  Company Number: US-PERRIGO-12US001249

PATIENT
  Sex: Female
  Weight: 122.45 kg

DRUGS (3)
  1. OXYMETAZOLINE HCL [Suspect]
     Indication: NASAL CONGESTION
     Dosage: 2 SPRAYS IN EACH NOSTRIL, BID
     Route: 045
     Dates: start: 20111201, end: 20120101
  2. ZOCOR [Concomitant]
     Indication: CHOLESTEROSIS
     Dosage: UNK, QD
     Route: 048
  3. LISINOPRIL [Concomitant]
     Indication: HYPERTENSION
     Dosage: UNK, QD
     Route: 048

REACTIONS (3)
  - ANOSMIA [None]
  - AGEUSIA [None]
  - INCORRECT DRUG ADMINISTRATION DURATION [None]
